FAERS Safety Report 15213837 (Version 1)
Quarter: 2018Q3

REPORT INFORMATION
  Report Type: Report from Study
  Country: US (occurrence: US)
  Receive Date: 20180730
  Receipt Date: 20180730
  Transmission Date: 20181010
  Serious: No
  Sender: FDA-Public Use
  Company Number: US-SA-CAMP-1001084

PATIENT
  Age: 23 Year
  Sex: Female
  Weight: 74.83 kg

DRUGS (19)
  1. HYDROCODONE BITARTRATE. [Concomitant]
     Active Substance: HYDROCODONE BITARTRATE
     Indication: PAIN
     Dosage: 1 DF,QID
     Route: 048
     Dates: start: 20100110
  2. NAPROXEN SODIUM. [Concomitant]
     Active Substance: NAPROXEN SODIUM
     Indication: PYREXIA
     Dosage: 220 MG,QD
     Route: 048
     Dates: start: 20100531, end: 20100531
  3. PREDNISONE ACETATE [Concomitant]
     Active Substance: PREDNISONE ACETATE
     Indication: BRONCHITIS
     Dosage: 50 MG,QD
     Route: 048
     Dates: start: 20100610, end: 20100617
  4. ALEMTUZUMAB [Suspect]
     Active Substance: ALEMTUZUMAB
     Dosage: 24 MG,QD
     Route: 041
     Dates: start: 20090817, end: 20090819
  5. METHYLPREDNISOLONE. [Concomitant]
     Active Substance: METHYLPREDNISOLONE
     Indication: MULTIPLE SCLEROSIS
     Dosage: 1 G,QD
     Route: 042
     Dates: start: 20080825, end: 20080827
  6. AZITHROMYCIN ANHYDROUS. [Concomitant]
     Active Substance: AZITHROMYCIN ANHYDROUS
     Indication: BRONCHITIS
     Dosage: 250 MG,QD
     Route: 048
     Dates: start: 20100610, end: 20100613
  7. HYDROCODONE BITARTRATE. [Concomitant]
     Active Substance: HYDROCODONE BITARTRATE
     Indication: PAIN IN EXTREMITY
     Dosage: 1 DF,BID
     Route: 048
     Dates: start: 200512, end: 20100110
  8. VALACICLOVIR HYDROCHLORIDE [Concomitant]
     Active Substance: VALACYCLOVIR HYDROCHLORIDE
     Indication: HERPES ZOSTER
     Dosage: 500 MG,BID
     Route: 048
     Dates: start: 20080916, end: 20080923
  9. GABAPENTIN. [Concomitant]
     Active Substance: GABAPENTIN
     Indication: NEURALGIA
     Dosage: 100 MG,TID
     Route: 048
     Dates: start: 20100519, end: 20100609
  10. NAPROXEN SODIUM. [Concomitant]
     Active Substance: NAPROXEN SODIUM
     Dosage: 220 MG,QD
     Route: 048
     Dates: start: 20100607, end: 20100607
  11. IBUPROFEN. [Concomitant]
     Active Substance: IBUPROFEN
     Indication: BRONCHITIS
     Dosage: 600 MG,QD
     Route: 048
     Dates: start: 20100610, end: 20100613
  12. ERGOCALCIFEROL. [Concomitant]
     Active Substance: ERGOCALCIFEROL
     Indication: SUPPLEMENTATION THERAPY
     Dosage: 5000 DF,QD
     Route: 042
     Dates: start: 20100806
  13. ALEMTUZUMAB [Suspect]
     Active Substance: ALEMTUZUMAB
     Indication: MULTIPLE SCLEROSIS
     Dosage: 24 MG,QD
     Route: 041
     Dates: start: 20080825, end: 20080829
  14. TIZANIDINE. [Concomitant]
     Active Substance: TIZANIDINE
     Indication: PRODUCT USED FOR UNKNOWN INDICATION
     Dosage: 4 MG,UNK
     Route: 048
     Dates: start: 20100817
  15. ELETRIPTAN HYDROBROMIDE. [Concomitant]
     Active Substance: ELETRIPTAN HYDROBROMIDE
     Indication: MIGRAINE
     Dosage: 40 MG,PRN
     Route: 048
     Dates: start: 20100817
  16. DROSPIRENONE [Concomitant]
     Active Substance: DROSPIRENONE
     Indication: CONTRACEPTION
     Dosage: 1 DF,QD
     Route: 048
     Dates: start: 2007, end: 20080813
  17. ACETYLSALICYLIC ACID [Concomitant]
     Active Substance: ASPIRIN
     Indication: HEADACHE
     Dosage: 2 DF,PRN
     Route: 048
     Dates: start: 2006
  18. METHYLPREDNISOLONE. [Concomitant]
     Active Substance: METHYLPREDNISOLONE
     Indication: MULTIPLE SCLEROSIS
     Dosage: 1 G,QD
     Route: 042
     Dates: start: 20090817, end: 20090819
  19. METHYLPREDNISOLONE SODIUM SUCCINATE. [Concomitant]
     Active Substance: METHYLPREDNISOLONE SODIUM SUCCINATE
     Indication: MULTIPLE SCLEROSIS RELAPSE
     Dosage: 1000 MG,QD
     Route: 042
     Dates: start: 20100818, end: 20100821

REACTIONS (1)
  - Hyperthyroidism [Recovered/Resolved]

NARRATIVE: CASE EVENT DATE: 20100413
